FAERS Safety Report 7298835-3 (Version None)
Quarter: 2011Q1

REPORT INFORMATION
  Report Type: 
  Country: None (occurrence: None)
  Receive Date: 20110207
  Receipt Date: 20110126
  Transmission Date: 20110831
  Serious: Yes (Other)
  Sender: FDA-Public Use
  Company Number: 2011P1004150

PATIENT
  Age: 61 Year
  Sex: Male
  Weight: 79.3795 kg

DRUGS (2)
  1. NYSTATIN + TRIAMCINOLONE ACETONIDE [Suspect]
     Indication: RASH
     Dosage: BIP; TOP
     Route: 061
     Dates: start: 20101124
  2. ^ALL KINDS OF HEART MEDICATIONS^ [Concomitant]

REACTIONS (2)
  - DRUG INEFFECTIVE [None]
  - CARDIAC OPERATION [None]
